FAERS Safety Report 8571888-8 (Version None)
Quarter: 2012Q3

REPORT INFORMATION
  Report Type: 
  Country: None (occurrence: None)
  Receive Date: 20120806
  Receipt Date: 20120801
  Transmission Date: 20120928
  Serious: Yes (Hospitalization, Other)
  Sender: FDA-Public Use
  Company Number: US-009507513-2012SP022610

PATIENT

DRUGS (5)
  1. NUVARING [Suspect]
     Dosage: UNK
     Dates: start: 20080214, end: 20090401
  2. NUVARING [Suspect]
     Indication: CONTRACEPTION
     Dates: start: 20071201, end: 20090101
  3. NUVARING [Suspect]
     Dosage: UNK
     Dates: start: 20090801, end: 20100701
  4. NUVARING [Suspect]
     Dosage: UNK
     Dates: start: 20071016, end: 20080101
  5. NUVARING [Suspect]
     Dosage: UNK
     Dates: start: 20090819, end: 20100801

REACTIONS (4)
  - DEEP VEIN THROMBOSIS [None]
  - SINUS DISORDER [None]
  - PULMONARY EMBOLISM [None]
  - ASTHMA [None]
